FAERS Safety Report 19109359 (Version 1)
Quarter: 2021Q2

REPORT INFORMATION
  Report Type: Report from Study
  Country: BE (occurrence: BE)
  Receive Date: 20210408
  Receipt Date: 20210408
  Transmission Date: 20210717
  Serious: Yes (Other)
  Sender: FDA-Public Use
  Company Number: NVSC2021BE054736

PATIENT
  Age: 3 Year
  Sex: Male
  Weight: 11.8 kg

DRUGS (1)
  1. ZOLGENSMA [Suspect]
     Active Substance: ONASEMNOGENE ABEPARVOVEC-XIOI
     Indication: SPINAL MUSCULAR ATROPHY
     Dosage: 65 ML, ONCE/SINGLE (1.1X10^14 VG/KG)
     Route: 042
     Dates: start: 20210226, end: 20210226

REACTIONS (8)
  - Nausea [Recovered/Resolved]
  - Thrombocytopenia [Recovered/Resolved]
  - Blood lactate dehydrogenase increased [Recovered/Resolved]
  - Hepatic enzyme abnormal [Unknown]
  - Pyrexia [Recovered/Resolved]
  - Fibrin D dimer increased [Unknown]
  - Decreased appetite [Unknown]
  - Hepatic enzyme increased [Not Recovered/Not Resolved]

NARRATIVE: CASE EVENT DATE: 20210228
